FAERS Safety Report 22362349 (Version 2)
Quarter: 2023Q2

REPORT INFORMATION
  Report Type: Spontaneous
  Country: US (occurrence: US)
  Receive Date: 20230524
  Receipt Date: 20230530
  Transmission Date: 20230721
  Serious: Yes (Disabling)
  Sender: FDA-Public Use
  Company Number: US-PFIZER INC-202300199979

PATIENT
  Age: 66 Year
  Sex: Female

DRUGS (3)
  1. PAXLOVID [Suspect]
     Active Substance: NIRMATRELVIR\RITONAVIR
     Indication: COVID-19 treatment
     Dosage: UNK
     Dates: start: 202305
  2. PROMETHAZINE [Suspect]
     Active Substance: PROMETHAZINE HYDROCHLORIDE
     Indication: Cough
     Dosage: UNK
     Dates: start: 202305, end: 202305
  3. TYROSINE [Concomitant]
     Active Substance: TYROSINE
     Indication: Thyroidectomy
     Dosage: UNK

REACTIONS (5)
  - Gait disturbance [Unknown]
  - Headache [Unknown]
  - Fall [Unknown]
  - Feeling abnormal [Unknown]
  - Balance disorder [Unknown]
